FAERS Safety Report 16857445 (Version 1)
Quarter: 2019Q3

REPORT INFORMATION
  Report Type: Spontaneous
  Country: BE (occurrence: BE)
  Receive Date: 20190926
  Receipt Date: 20190926
  Transmission Date: 20191005
  Serious: Yes (Other)
  Sender: FDA-Public Use
  Company Number: BE-PFIZER INC-2019411850

PATIENT
  Age: 53 Year
  Sex: Male

DRUGS (4)
  1. ALGOCOD [Suspect]
     Active Substance: ACETAMINOPHEN\CODEINE PHOSPHATE
     Indication: GASTROENTERITIS
     Dosage: UNK UNK, AS NEEDED
     Route: 048
     Dates: start: 20190918, end: 20190920
  2. EFEXOR-EXEL [Concomitant]
     Active Substance: VENLAFAXINE HYDROCHLORIDE
     Dosage: UNK
  3. GABBRORAL [Suspect]
     Active Substance: PAROMOMYCIN SULFATE
     Indication: GASTROENTERITIS
     Dosage: 250 MG, 3X/DAY
     Route: 048
     Dates: start: 20190918
  4. TENORMIN [Concomitant]
     Active Substance: ATENOLOL
     Dosage: UNK

REACTIONS (2)
  - Off label use [Unknown]
  - Nephrolithiasis [Recovered/Resolved]

NARRATIVE: CASE EVENT DATE: 20190918
